FAERS Safety Report 8673610 (Version 2)
Quarter: 2012Q4

REPORT INFORMATION
  Report Type: 
  Country: US (occurrence: US)
  Receive Date: 20120719
  Receipt Date: 20121019
  Transmission Date: 20130627
  Serious: Yes (Hospitalization)
  Sender: FDA-Public Use
  Company Number: US-BRISTOL-MYERS SQUIBB COMPANY-16646952

PATIENT
  Age: 80 Year
  Sex: Male
  Weight: 97 kg

DRUGS (1)
  1. YERVOY [Suspect]
     Indication: MALIGNANT MELANOMA
     Dosage: given on 19Jan12 ,16Feb12, 15Mar12, 12Apr12
     Route: 042
     Dates: start: 20120119

REACTIONS (1)
  - Hypophysitis [Unknown]
